FAERS Safety Report 9416465 (Version 2)
Quarter: 2013Q3

REPORT INFORMATION
  Report Type: Spontaneous
  Country: TW (occurrence: TW)
  Receive Date: 20130724
  Receipt Date: 20130806
  Transmission Date: 20140515
  Serious: Yes (Other)
  Sender: FDA-Public Use
  Company Number: PHHY2013TW076150

PATIENT
  Age: 43 Year
  Sex: Female

DRUGS (8)
  1. CLOZAPINE [Suspect]
     Dosage: 400 MG, PER DAY
  2. CLOZAPINE [Suspect]
     Dosage: 350 MG, PER DAY
  3. SERTRALINE [Suspect]
     Dosage: 300 MG, PER DAY
  4. HALOPERIDOL [Concomitant]
     Dosage: 10 MG, PER DAY
  5. ESCITALOPRAM [Concomitant]
     Dosage: 20 MG, PER DAY
  6. FLUPENTIXOL [Concomitant]
     Dosage: UNK UKN, UNK
  7. RISPERIDONE [Concomitant]
     Dosage: UNK UKN, UNK
  8. OLANZAPINE [Concomitant]
     Dosage: UNK UKN, UNK

REACTIONS (6)
  - Psychotic disorder [Unknown]
  - Mental disorder [Unknown]
  - Hallucination, auditory [Recovering/Resolving]
  - Compulsions [Recovering/Resolving]
  - Drug interaction [Unknown]
  - Antipsychotic drug level decreased [Unknown]
